FAERS Safety Report 22345519 (Version 1)
Quarter: 2023Q2

REPORT INFORMATION
  Report Type: Spontaneous
  Country: CN (occurrence: None)
  Receive Date: 20230519
  Receipt Date: 20230519
  Transmission Date: 20230721
  Serious: Yes (Hospitalization, Other)
  Sender: FDA-Public Use
  Company Number: 2023A114143

PATIENT
  Age: 21651 Day
  Sex: Female
  Weight: 55 kg

DRUGS (6)
  1. TICAGRELOR [Suspect]
     Active Substance: TICAGRELOR
     Indication: Platelet aggregation abnormal
     Route: 048
     Dates: start: 20230510, end: 20230512
  2. IODIXANOL [Suspect]
     Active Substance: IODIXANOL
     Indication: Imaging procedure
     Route: 042
     Dates: start: 20230510, end: 20230510
  3. ASPIRIN [Suspect]
     Active Substance: ASPIRIN
     Indication: Platelet aggregation abnormal
     Route: 048
     Dates: start: 20230509, end: 20230511
  4. MANNITOL [Concomitant]
     Active Substance: MANNITOL
     Route: 042
  5. SODIUM CHLORIDE [Concomitant]
     Active Substance: SODIUM CHLORIDE
     Indication: Fluid replacement
  6. DEXAMETHASONE SODIUM PHOSPHATE [Concomitant]
     Active Substance: DEXAMETHASONE SODIUM PHOSPHATE
     Indication: Hypersensitivity
     Route: 042

REACTIONS (2)
  - Subarachnoid haemorrhage [Recovering/Resolving]
  - Encephalopathy [Recovering/Resolving]

NARRATIVE: CASE EVENT DATE: 20230510
